FAERS Safety Report 15500180 (Version 1)
Quarter: 2018Q4

REPORT INFORMATION
  Report Type: Spontaneous
  Country: US (occurrence: US)
  Receive Date: 20181015
  Receipt Date: 20181015
  Transmission Date: 20190205
  Serious: Yes (Hospitalization, Other)
  Sender: FDA-Public Use
  Company Number: US-STRIDES ARCOLAB LIMITED-2018SP008837

PATIENT
  Age: 73 Year
  Sex: Male

DRUGS (5)
  1. VITAMIN D3 [Concomitant]
     Active Substance: CHOLECALCIFEROL
     Indication: NUTRITIONAL SUPPLEMENTATION
     Dosage: 2,000 U/D
     Route: 065
  2. NORTRIPTYLINE [Concomitant]
     Active Substance: NORTRIPTYLINE
     Indication: MAJOR DEPRESSION
     Dosage: 25 MG , DAILY
     Route: 065
  3. CITALOPRAM [Concomitant]
     Active Substance: CITALOPRAM HYDROBROMIDE
     Indication: MAJOR DEPRESSION
     Dosage: 40 MG, DAILY
     Route: 065
  4. OMEGA-3-ACID ETHYL ESTERS. [Suspect]
     Active Substance: OMEGA-3-ACID ETHYL ESTERS
     Indication: PRODUCT USED FOR UNKNOWN INDICATION
     Dosage: 10 TO 15 G, DAILY
     Route: 065
  5. BUPRENORPHINE. [Concomitant]
     Active Substance: BUPRENORPHINE
     Indication: PAIN
     Dosage: 2 MG, QID
     Route: 060

REACTIONS (11)
  - Mania [Recovered/Resolved]
  - Insomnia [Recovered/Resolved]
  - Intentional product misuse [Recovered/Resolved]
  - Psychotic disorder [Recovered/Resolved]
  - Delusion of grandeur [Recovered/Resolved]
  - Irritability [Recovered/Resolved]
  - Poor quality sleep [Recovered/Resolved]
  - Grandiosity [Recovered/Resolved]
  - Impulsive behaviour [Recovered/Resolved]
  - Aggression [Recovered/Resolved]
  - Thinking abnormal [Recovered/Resolved]
